FAERS Safety Report 10538960 (Version 1)
Quarter: 2014Q4

REPORT INFORMATION
  Report Type: Spontaneous
  Country: DE (occurrence: DE)
  Receive Date: 20141023
  Receipt Date: 20141023
  Transmission Date: 20150529
  Serious: Yes (Death, Life-Threatening, Hospitalization, Other)
  Sender: FDA-Public Use
  Company Number: DE-OTSUKA-US-2014-13244

PATIENT

DRUGS (2)
  1. DACOGEN [Suspect]
     Active Substance: DECITABINE
     Indication: ACUTE MYELOID LEUKAEMIA
     Dosage: 30 MG MILLIGRAM(S), IN 1 DAY, UNKNOWN
     Route: 065
     Dates: start: 20140811, end: 20140815
  2. ATRA [Suspect]
     Active Substance: TRETINOIN
     Indication: ACUTE MYELOID LEUKAEMIA
     Dosage: 60 MG MILLIGRAM(S), UNKNOWN
     Route: 065
     Dates: start: 20140816, end: 20140904

REACTIONS (2)
  - Pneumonia [Fatal]
  - Diverticulitis [Recovered/Resolved with Sequelae]

NARRATIVE: CASE EVENT DATE: 20140905
